FAERS Safety Report 9932849 (Version 1)
Quarter: 2014Q1

REPORT INFORMATION
  Report Type: Spontaneous
  Country: US (occurrence: US)
  Receive Date: 20140228
  Receipt Date: 20140228
  Transmission Date: 20141002
  Serious: No
  Sender: FDA-Public Use
  Company Number: US-ABBVIE-13P-163-1085693-00

PATIENT
  Age: 64 Year
  Sex: Male
  Weight: 112.59 kg

DRUGS (2)
  1. ANDROGEL [Suspect]
     Indication: BLOOD TESTOSTERONE DECREASED
     Dosage: 4 PUMPS DAILY
     Route: 061
     Dates: start: 20130225
  2. SIMVASTATIN [Concomitant]
     Indication: PRODUCT USED FOR UNKNOWN INDICATION

REACTIONS (3)
  - Mood altered [Not Recovered/Not Resolved]
  - Aggression [Not Recovered/Not Resolved]
  - Asthenia [Not Recovered/Not Resolved]
